FAERS Safety Report 7068758-3 (Version None)
Quarter: 2010Q4

REPORT INFORMATION
  Report Type: 
  Country: None (occurrence: None)
  Receive Date: 20101027
  Receipt Date: 20101027
  Transmission Date: 20110411
  Serious: Yes (Other)
  Sender: FDA-Public Use
  Company Number: None

PATIENT
  Age: 36 Year
  Sex: Female
  Weight: 78.0187 kg

DRUGS (2)
  1. DIFLUCAN [Suspect]
     Indication: FUNGAL INFECTION
     Dosage: ONCE PO
     Route: 048
     Dates: start: 20091025, end: 20091025
  2. DIFLUCAN [Suspect]
     Indication: FUNGAL INFECTION
     Dosage: ONCE PO
     Route: 048
     Dates: start: 20101024, end: 20101024

REACTIONS (2)
  - EYE SWELLING [None]
  - OCULAR HYPERAEMIA [None]
